FAERS Safety Report 10597787 (Version 4)
Quarter: 2015Q3

REPORT INFORMATION
  Report Type: Report from Study
  Country: FR (occurrence: FR)
  Receive Date: 20141121
  Receipt Date: 20150827
  Transmission Date: 20151125
  Serious: Yes (Hospitalization)
  Sender: FDA-Public Use
  Company Number: FR-CELGENE-FRA-2014112395

PATIENT
  Age: 67 Year
  Sex: Male

DRUGS (5)
  1. 5-FLUOROURACIL [Suspect]
     Active Substance: FLUOROURACIL
     Dosage: 4250 MG
     Route: 041
     Dates: start: 20141016, end: 20141016
  2. ABRAXANE [Suspect]
     Active Substance: PACLITAXEL
     Indication: PANCREATIC CARCINOMA METASTATIC
     Dosage: 220 MG
     Route: 041
     Dates: start: 20141016, end: 20141016
  3. ABRAXANE [Suspect]
     Active Substance: PACLITAXEL
     Route: 041
     Dates: end: 20141112
  4. 5-FLUOROURACIL [Suspect]
     Active Substance: FLUOROURACIL
     Indication: PANCREATIC CARCINOMA METASTATIC
     Dosage: 700 MG
     Route: 040
     Dates: start: 20141016, end: 20141016
  5. FOLINIC ACID [Suspect]
     Active Substance: LEUCOVORIN
     Indication: PANCREATIC CARCINOMA METASTATIC
     Dosage: 708 MG
     Route: 041
     Dates: start: 20141016, end: 20141016

REACTIONS (1)
  - Tumour fistulisation [Not Recovered/Not Resolved]

NARRATIVE: CASE EVENT DATE: 20141023
